FAERS Safety Report 8075797-2 (Version None)
Quarter: 2012Q1

REPORT INFORMATION
  Report Type: 
  Country: None (occurrence: None)
  Receive Date: 20120127
  Receipt Date: 20120116
  Transmission Date: 20120608
  Serious: Yes (Hospitalization)
  Sender: FDA-Public Use
  Company Number: ES-ELI_LILLY_AND_COMPANY-ES201112000431

PATIENT
  Sex: Female
  Weight: 48 kg

DRUGS (11)
  1. QUETIAPINE [Concomitant]
     Indication: PSYCHOTIC DISORDER
     Dosage: 1 DF, QD
     Route: 048
  2. ASPIRIN [Concomitant]
     Indication: CARDIAC PACEMAKER INSERTION
     Dosage: 1 DF, QD
     Route: 048
  3. BOI K [Concomitant]
     Dosage: 1 DF, QD
     Route: 048
  4. OMEPRAZOLE [Concomitant]
     Indication: GASTRIC DISORDER
     Dosage: 1 DF, QD
     Route: 048
  5. RISPERDAL [Concomitant]
     Indication: ANXIETY
     Dosage: 0.5 MG, QD
     Route: 048
     Dates: start: 20111028
  6. LANIRAPID [Concomitant]
     Indication: ARRHYTHMIA
     Dosage: UNK, OTHER
     Route: 048
  7. SPIRIVA [Concomitant]
     Indication: RESPIRATORY FAILURE
     Dosage: 1 DF, QD
     Route: 055
  8. PREDNISONE [Concomitant]
     Dosage: 1 DF, QD
     Route: 048
  9. FUROSEMIDA                         /00032601/ [Concomitant]
     Indication: HYPERTENSION
     Dosage: 1 DF, QD
     Route: 048
  10. BISOPROLOL FUMARATE [Concomitant]
     Indication: HYPERTENSION
     Dosage: 1 DF, QD
     Route: 048
  11. FORTEO [Suspect]
     Indication: OSTEOPOROSIS
     Dosage: 20 UG, QD
     Route: 058
     Dates: start: 20110303

REACTIONS (4)
  - CONFUSIONAL STATE [None]
  - CARDIAC FAILURE CONGESTIVE [None]
  - LOBAR PNEUMONIA [None]
  - URINARY TRACT INFECTION [None]
